FAERS Safety Report 5952080-X (Version None)
Quarter: 2008Q4

REPORT INFORMATION
  Report Type: 
  Country: None (occurrence: None)
  Receive Date: 20081113
  Receipt Date: 20080319
  Transmission Date: 20090506
  Serious: No
  Sender: FDA-Public Use
  Company Number: A0715520A

PATIENT
  Age: 92 Year
  Sex: Female

DRUGS (4)
  1. COREG [Suspect]
     Indication: HYPERTENSION
     Dosage: 25MG PER DAY
     Route: 048
     Dates: start: 20030101
  2. COREG CR [Suspect]
     Indication: HYPERTENSION
     Dosage: 20MG PER DAY
     Route: 048
  3. ATACAND [Concomitant]
  4. ALDACTONE [Concomitant]

REACTIONS (3)
  - CONTUSION [None]
  - DRUG INEFFECTIVE [None]
  - FATIGUE [None]
